FAERS Safety Report 8900478 (Version 2)
Quarter: 2012Q4

REPORT INFORMATION
  Report Type: 
  Country: US (occurrence: US)
  Receive Date: 20121109
  Receipt Date: 20121221
  Transmission Date: 20130627
  Serious: Yes (Disabling, Other)
  Sender: FDA-Public Use
  Company Number: US-009507513-1211USA004281

PATIENT
  Sex: Female

DRUGS (1)
  1. ZOCOR [Suspect]

REACTIONS (3)
  - Myalgia [Unknown]
  - Muscular weakness [Unknown]
  - Hypersensitivity [Unknown]
